FAERS Safety Report 22198273 (Version 1)
Quarter: 2023Q2

REPORT INFORMATION
  Report Type: Spontaneous
  Country: US (occurrence: US)
  Receive Date: 20230411
  Receipt Date: 20230411
  Transmission Date: 20230721
  Serious: No
  Sender: FDA-Public Use
  Company Number: US-Kiniksa Pharmaceuticals Ltd.-2022KPU000446

PATIENT
  Age: 36 Year
  Sex: Female

DRUGS (1)
  1. ARCALYST [Suspect]
     Active Substance: RILONACEPT
     Indication: Product used for unknown indication
     Route: 058

REACTIONS (2)
  - Cough [Unknown]
  - Nasopharyngitis [Unknown]

NARRATIVE: CASE EVENT DATE: 20220616
